FAERS Safety Report 5825445-4 (Version None)
Quarter: 2008Q3

REPORT INFORMATION
  Report Type: 
  Country: None (occurrence: None)
  Receive Date: 20080722
  Receipt Date: 20070711
  Transmission Date: 20090109
  Serious: Yes (Hospitalization)
  Sender: FDA-Public Use
  Company Number: 2007BI014534

PATIENT
  Age: 58 Year
  Sex: Female
  Weight: 73.0291 kg

DRUGS (6)
  1. AVONEX LYOPHILIZED [Suspect]
     Indication: MULTIPLE SCLEROSIS
     Dosage: 30 UG;QW;IM
     Route: 030
     Dates: start: 20030710, end: 20030101
  2. AVONEX [Suspect]
     Indication: MULTIPLE SCLEROSIS
     Dosage: 30 UG;QW;IM
     Route: 030
     Dates: start: 20030101
  3. PAXIL [Concomitant]
  4. TYLENOL [Concomitant]
  5. DIOVAN [Concomitant]
  6. XANAX [Concomitant]

REACTIONS (3)
  - BREAST MASS [None]
  - MULTIPLE SCLEROSIS RELAPSE [None]
  - STRESS [None]
